FAERS Safety Report 9939406 (Version 1)
Quarter: 2014Q1

REPORT INFORMATION
  Report Type: Report from Study
  Country: US (occurrence: US)
  Receive Date: 20140303
  Receipt Date: 20140303
  Transmission Date: 20141002
  Serious: No
  Sender: FDA-Public Use
  Company Number: US-ABBVIE-13P-163-1034618-00

PATIENT
  Age: 57 Year
  Sex: Female
  Weight: 97.61 kg

DRUGS (9)
  1. HUMIRA PEN [Suspect]
     Indication: PSORIASIS
     Dates: start: 2012
  2. CLOBETASOL [Concomitant]
     Indication: PSORIASIS
  3. SYNTHROID [Concomitant]
     Indication: HYPOTHYROIDISM
  4. PREVACID [Concomitant]
     Indication: GASTROOESOPHAGEAL REFLUX DISEASE
  5. SPIRIVA [Concomitant]
     Indication: ASTHMA
  6. SINGULAIR [Concomitant]
     Indication: ASTHMA
  7. DEPAKOTE [Concomitant]
     Indication: DEPRESSION
  8. CLONOPIN [Concomitant]
     Indication: PANIC ATTACK
  9. FOLIC ACID [Concomitant]
     Indication: VITAMIN SUPPLEMENTATION

REACTIONS (1)
  - Psoriasis [Not Recovered/Not Resolved]
